FAERS Safety Report 8973315 (Version 1)
Quarter: 2012Q4

REPORT INFORMATION
  Report Type: 
  Country: US (occurrence: US)
  Receive Date: 20121218
  Receipt Date: 20121218
  Transmission Date: 20130627
  Serious: No
  Sender: FDA-Public Use
  Company Number: US-BRISTOL-MYERS SQUIBB COMPANY-16443731

PATIENT
  Age: 47 Year
  Sex: Male

DRUGS (5)
  1. ABILIFY [Suspect]
     Dates: start: 2004
  2. DILANTIN [Concomitant]
     Dates: start: 1989, end: 1990
  3. DEPAKOTE [Concomitant]
  4. LAMICTAL [Concomitant]
  5. ZOLOFT [Concomitant]

REACTIONS (2)
  - Fatigue [Unknown]
  - Somnolence [Unknown]
